FAERS Safety Report 5209017-0 (Version None)
Quarter: 2007Q1

REPORT INFORMATION
  Report Type: 
  Country: None (occurrence: None)
  Receive Date: 20070116
  Receipt Date: 20070108
  Transmission Date: 20070707
  Serious: Yes (Other)
  Sender: FDA-Public Use
  Company Number: FR-MERCK-0701FRA00015M

PATIENT
  Age: 31 Year
  Sex: Female

DRUGS (1)
  1. PROPECIA [Suspect]
     Route: 065

REACTIONS (2)
  - ABORTION INDUCED [None]
  - TRANSMISSION OF DRUG VIA SEMEN [None]
